FAERS Safety Report 11983383 (Version 3)
Quarter: 2016Q1

REPORT INFORMATION
  Report Type: Spontaneous
  Country: US (occurrence: US)
  Receive Date: 20160201
  Receipt Date: 20160331
  Transmission Date: 20160526
  Serious: Yes (Death, Other)
  Sender: FDA-Public Use
  Company Number: US-009507513-1601USA009292

PATIENT
  Age: 58 Year
  Sex: Male

DRUGS (2)
  1. PEGINTRON [Suspect]
     Active Substance: PEGINTERFERON ALFA-2B
     Indication: GENERAL SYMPTOM
     Dosage: 80 MICROGRAM, WEEKLY
     Route: 058
     Dates: start: 20121116
  2. PEGINTRON [Suspect]
     Active Substance: PEGINTERFERON ALFA-2B
     Indication: NEOPLASM MALIGNANT

REACTIONS (3)
  - Infection [Fatal]
  - Mycosis fungoides [Unknown]
  - Product use issue [Unknown]

NARRATIVE: CASE EVENT DATE: 20151211
